FAERS Safety Report 24046938 (Version 1)
Quarter: 2024Q3

REPORT INFORMATION
  Report Type: Spontaneous
  Country: AU (occurrence: AU)
  Receive Date: 20240703
  Receipt Date: 20240703
  Transmission Date: 20241017
  Serious: Yes (Death)
  Sender: BLUEPRINT MEDICINES
  Company Number: AU-Blueprint Medicines Corporation-SO-AU-2024-001324

PATIENT
  Sex: Male

DRUGS (1)
  1. AVAPRITINIB [Suspect]
     Active Substance: AVAPRITINIB
     Indication: Product used for unknown indication
     Dosage: 2 WEEKS ON, 2 WEEKS OFF
     Route: 065

REACTIONS (1)
  - Death [Fatal]

NARRATIVE: CASE EVENT DATE: 20240601
